FAERS Safety Report 8436896-6 (Version None)
Quarter: 2012Q2

REPORT INFORMATION
  Report Type: 
  Country: None (occurrence: None)
  Receive Date: 20120323
  Receipt Date: 20110825
  Transmission Date: 20120825
  Serious: Yes (Death)
  Sender: FDA-Public Use
  Company Number: 163-21880-11063894

PATIENT
  Age: 69 Year
  Sex: Female

DRUGS (14)
  1. LASIX [Concomitant]
  2. AMBIEN [Concomitant]
  3. ATIVAN [Concomitant]
  4. PROCHLORPERAZINE (PROCHLORPERAZINE) (UNKNOWN) [Concomitant]
  5. REVLIMID [Suspect]
     Indication: MULTIPLE MYELOMA
     Dosage: 15 MG, 1 IN 1 D, PO , 25 MG, QD X 21 DAYS, PO
     Route: 048
     Dates: start: 20090501, end: 20100101
  6. REVLIMID [Suspect]
     Indication: MULTIPLE MYELOMA
     Dosage: 15 MG, 1 IN 1 D, PO , 25 MG, QD X 21 DAYS, PO
     Route: 048
     Dates: start: 20101211
  7. COLACE (DOCUSATE SODIUM)(UNKNOWN) [Concomitant]
  8. OXYCONTIN [Concomitant]
  9. BIAXIN [Concomitant]
  10. DILAUDID (HYDROMORPHONE HYDROCHLORIDE)(UNKNOWN) [Concomitant]
  11. DEXAMETHASONE [Concomitant]
  12. PRILOSEC  (OMEPRAZOLE) (UNKNOWN) [Concomitant]
  13. MIRALAX (MACROGOL)(UNKNOWN) [Concomitant]
  14. SENNA (SENNA) (UNKNOWN) [Concomitant]

REACTIONS (1)
  - PNEUMONIA [None]
